FAERS Safety Report 14335764 (Version 1)
Quarter: 2017Q4

REPORT INFORMATION
  Report Type: Other
  Country: US (occurrence: US)
  Receive Date: 20171229
  Receipt Date: 20171229
  Transmission Date: 20180321
  Serious: Yes (Hospitalization, Other)
  Sender: FDA-Public Use
  Company Number: US-ORCHID HEALTHCARE-2037993

PATIENT
  Age: 18 Year
  Sex: Male

DRUGS (1)
  1. LEVETIRACETAM. [Suspect]
     Active Substance: LEVETIRACETAM
     Indication: CONVULSION PROPHYLAXIS
     Route: 048

REACTIONS (6)
  - Hepatitis A antibody positive [None]
  - Alanine aminotransferase increased [None]
  - Aspartate aminotransferase increased [None]
  - Urinary tract infection [None]
  - Transaminases increased [Recovered/Resolved]
  - Sepsis [None]
